FAERS Safety Report 8987787 (Version 1)
Quarter: 2012Q4

REPORT INFORMATION
  Report Type: 
  Country: US (occurrence: US)
  Receive Date: 20121227
  Receipt Date: 20121227
  Transmission Date: 20130627
  Serious: No
  Sender: FDA-Public Use
  Company Number: US-PFIZER INC-2012326800

PATIENT
  Age: 61 Year
  Sex: Male
  Weight: 63.49 kg

DRUGS (2)
  1. TOVIAZ [Suspect]
     Indication: IRRITABLE BLADDER
     Dosage: 1 mg, daily
     Route: 048
     Dates: start: 201203
  2. AMBIEN [Concomitant]
     Indication: SLEEP DISORDER
     Dosage: 10 mg, daily
     Dates: start: 1999

REACTIONS (3)
  - Abnormal sensation in eye [Recovering/Resolving]
  - Malabsorption [Unknown]
  - Medication residue [Unknown]
